FAERS Safety Report 10070325 (Version 4)
Quarter: 2014Q3

REPORT INFORMATION
  Report Type: Spontaneous
  Country: US (occurrence: US)
  Receive Date: 20140410
  Receipt Date: 20140724
  Transmission Date: 20150326
  Serious: Yes (Hospitalization)
  Sender: FDA-Public Use
  Company Number: US-BAYER-2014-053541

PATIENT
  Age: 33 Year
  Sex: Female
  Weight: 65.76 kg

DRUGS (2)
  1. MIRENA [Suspect]
     Active Substance: LEVONORGESTREL
     Indication: CONTRACEPTION
     Dosage: 20 MCG/24HR, CONT
     Route: 015
     Dates: start: 20080805, end: 20120508
  2. HUMALOG [INSULIN] [Concomitant]
     Indication: DIABETES MELLITUS
     Dosage: UNK
     Dates: start: 1983

REACTIONS (5)
  - Post procedural discomfort [None]
  - Procedural pain [None]
  - Injury [None]
  - Uterine perforation [None]
  - Medical device pain [None]

NARRATIVE: CASE EVENT DATE: 201205
